FAERS Safety Report 16288871 (Version 3)
Quarter: 2019Q3

REPORT INFORMATION
  Report Type: Spontaneous
  Country: US (occurrence: US)
  Receive Date: 20190509
  Receipt Date: 20190703
  Transmission Date: 20191004
  Serious: No
  Sender: FDA-Public Use
  Company Number: US-BIOGEN-2019BI00730408

PATIENT
  Sex: Female

DRUGS (2)
  1. TECFIDERA [Suspect]
     Active Substance: DIMETHYL FUMARATE
     Route: 048
     Dates: start: 20190502
  2. TECFIDERA [Suspect]
     Active Substance: DIMETHYL FUMARATE
     Indication: MULTIPLE SCLEROSIS
     Route: 048
     Dates: start: 20190423

REACTIONS (9)
  - Mobility decreased [Unknown]
  - Burning sensation [Unknown]
  - Rash macular [Not Recovered/Not Resolved]
  - Product dose omission [Unknown]
  - Oropharyngeal pain [Unknown]
  - Gastric disorder [Recovered/Resolved]
  - Fatigue [Unknown]
  - Flushing [Not Recovered/Not Resolved]
  - Rash [Unknown]
